FAERS Safety Report 5169649-5 (Version None)
Quarter: 2006Q4

REPORT INFORMATION
  Report Type: 
  Country: None (occurrence: None)
  Receive Date: 20060918
  Receipt Date: 20060724
  Transmission Date: 20070319
  Serious: Yes (Hospitalization, Other)
  Sender: FDA-Public Use
  Company Number: US-JNJFOC-20060604815

PATIENT
  Age: 44 Year
  Sex: Female
  Weight: 66.2252 kg

DRUGS (3)
  1. ORTHO EVRA [Suspect]
     Indication: CONTRACEPTION
     Dosage: 1 DOSE(S), 3 IN 4 WEEK
     Dates: start: 20040401, end: 20050901
  2. ORTHO EVRA [Suspect]
     Indication: MENSTRUAL DISORDER
     Dosage: 1 DOSE(S), 3 IN 4 WEEK
     Dates: start: 20040401, end: 20050901
  3. ORTHO EVRA [Suspect]
     Indication: MUSCLE SPASMS
     Dosage: 1 DOSE(S), 3 IN 4 WEEK
     Dates: start: 20040401, end: 20050901

REACTIONS (2)
  - PULMONARY EMBOLISM [None]
  - URINARY TRACT INFECTION [None]
